FAERS Safety Report 20619500 (Version 1)
Quarter: 2022Q1

REPORT INFORMATION
  Report Type: Other
  Country: US (occurrence: None)
  Receive Date: 20220322
  Receipt Date: 20220322
  Transmission Date: 20220423
  Serious: Yes (Hospitalization, Other)
  Sender: FDA-Public Use
  Company Number: US-ROCHE-3047525

PATIENT
  Sex: Male
  Weight: 93.070 kg

DRUGS (8)
  1. OCREVUS [Suspect]
     Active Substance: OCRELIZUMAB
     Indication: Relapsing-remitting multiple sclerosis
     Dosage: EVERY SIX MONTHS ;ONGOING: YES
     Route: 042
     Dates: start: 2019
  2. TRILEPTAL [Concomitant]
     Active Substance: OXCARBAZEPINE
     Indication: Product use in unapproved indication
     Dosage: ONCE IN MORNING AND ONCE IN EVENING
     Route: 048
     Dates: start: 2022
  3. HYDROCHLOROTHIAZIDE\LOSARTAN [Concomitant]
     Active Substance: HYDROCHLOROTHIAZIDE\LOSARTAN
     Indication: Blood pressure measurement
     Dosage: 100MG/25MG ONCE A DAY
     Route: 048
  4. SERTRALINE [Concomitant]
     Active Substance: SERTRALINE HYDROCHLORIDE
     Indication: Anxiety
     Route: 048
  5. ERGOCALCIFEROL [Concomitant]
     Active Substance: ERGOCALCIFEROL
  6. MODAFINIL [Concomitant]
     Active Substance: MODAFINIL
  7. GABAPENTIN [Concomitant]
     Active Substance: GABAPENTIN
  8. BACLOFEN [Concomitant]
     Active Substance: BACLOFEN

REACTIONS (4)
  - Pain in extremity [Not Recovered/Not Resolved]
  - Gait disturbance [Not Recovered/Not Resolved]
  - Multiple sclerosis relapse [Unknown]
  - Walking aid user [Not Recovered/Not Resolved]

NARRATIVE: CASE EVENT DATE: 20190101
